FAERS Safety Report 22134001 (Version 2)
Quarter: 2023Q1

REPORT INFORMATION
  Report Type: Report from Study
  Country: TH (occurrence: None)
  Receive Date: 20230324
  Receipt Date: 20230324
  Transmission Date: 20230417
  Serious: Yes (Hospitalization)
  Sender: FDA-Public Use
  Company Number: TH-ROCHE-3315473

PATIENT
  Age: 70 Year
  Sex: Male
  Weight: 49.5 kg

DRUGS (12)
  1. TIRAGOLUMAB [Suspect]
     Active Substance: TIRAGOLUMAB
     Indication: Lung cancer metastatic
     Dosage: ON 21/FEB/2023, MOST RECENT DOSE OF BLINDED TIRAGOLUMAB (600 MG) WAS ADMINISTERED PRIOR TO AE/SAE
     Route: 042
     Dates: start: 20230201
  2. ATEZOLIZUMAB [Suspect]
     Active Substance: ATEZOLIZUMAB
     Indication: Lung cancer metastatic
     Dosage: ON 21/FEB/2023, MOST RECENT DOSE OF ATEZOLIZUMAB (200 ML) WAS ADMINISTERED PRIOR TO AE/SAE
     Route: 041
     Dates: start: 20230201
  3. PEMBROLIZUMAB [Suspect]
     Active Substance: PEMBROLIZUMAB
     Indication: Lung cancer metastatic
     Dosage: ON 21/FEB/2023, MOST RECENT DOSE OF PEMBROLIZUMAB (200 ML) WAS ADMINISTERED PRIOR TO AE/SAE
     Route: 042
     Dates: start: 20230201
  4. CARBOPLATIN [Suspect]
     Active Substance: CARBOPLATIN
     Indication: Lung cancer metastatic
     Dosage: ON 21/FEB/2023, MOST RECENT DOSE OF CARBOPLATIN (550 MG) WAS ADMINISTERED PRIOR TO AE/SAE
     Route: 042
     Dates: start: 20230201
  5. PEMETREXED [Suspect]
     Active Substance: PEMETREXED
     Indication: Lung cancer metastatic
     Dosage: ON 21/FEB/2023, MOST RECENT DOSE OF PEMETREXED (740 MG) WAS ADMINISTERED PRIOR TO AE/SAE
     Route: 042
     Dates: start: 20230201
  6. DEXAMETHASONE [Concomitant]
     Active Substance: DEXAMETHASONE
     Indication: Premedication
     Route: 048
     Dates: start: 20230131
  7. DEXAMETHASONE [Concomitant]
     Active Substance: DEXAMETHASONE
     Route: 042
     Dates: start: 20230201
  8. ONDANSETRON [Concomitant]
     Active Substance: ONDANSETRON
     Indication: Premedication
     Route: 048
     Dates: start: 20230131
  9. ONDANSETRON [Concomitant]
     Active Substance: ONDANSETRON
     Route: 042
     Dates: start: 20230201
  10. DOMPERIDONE [Concomitant]
     Active Substance: DOMPERIDONE
     Indication: Nausea
     Route: 048
     Dates: start: 20230209
  11. FOLIC ACID [Concomitant]
     Active Substance: FOLIC ACID
     Route: 048
     Dates: start: 20230314
  12. MILK OF MAGNESIA [Concomitant]
     Active Substance: MAGNESIUM HYDROXIDE
     Indication: Hypomagnesaemia
     Route: 048
     Dates: start: 20230314

REACTIONS (1)
  - Creatinine renal clearance decreased [Not Recovered/Not Resolved]

NARRATIVE: CASE EVENT DATE: 20230321
